FAERS Safety Report 23251433 (Version 1)
Quarter: 2023Q4

REPORT INFORMATION
  Report Type: Spontaneous
  Country: US (occurrence: None)
  Receive Date: 20231130
  Receipt Date: 20231130
  Transmission Date: 20240110
  Serious: No
  Sender: FDA-Public Use
  Company Number: None

PATIENT
  Age: 74 Year
  Sex: Female
  Weight: 68.04 kg

DRUGS (1)
  1. ORENCIA [Suspect]
     Active Substance: ABATACEPT
     Indication: Rheumatoid arthritis
     Dosage: INFUSE 750MG INTRAVENOUSLY OVER 1 HOUR AT WEEKS 0. 2, AND 4 AS DIRECTED?
     Route: 042
     Dates: start: 202306

REACTIONS (1)
  - Cardiac operation [None]
